FAERS Safety Report 18199607 (Version 4)
Quarter: 2021Q1

REPORT INFORMATION
  Report Type: Spontaneous
  Country: US (occurrence: US)
  Receive Date: 20200826
  Receipt Date: 20210218
  Transmission Date: 20210419
  Serious: Yes (Hospitalization, Other)
  Sender: FDA-Public Use
  Company Number: US-INTRA-CELLULAR THERAPIES, INC.-2020ICT00068

PATIENT
  Age: 51 Year
  Sex: Male
  Weight: 96.6 kg

DRUGS (21)
  1. CAPLYTA [Suspect]
     Active Substance: LUMATEPERONE
     Indication: SCHIZOAFFECTIVE DISORDER
     Dosage: 42 MG, 1X/DAY
     Route: 048
     Dates: start: 2020, end: 202010
  2. CAPLYTA [Suspect]
     Active Substance: LUMATEPERONE
     Indication: OBSESSIVE-COMPULSIVE DISORDER
  3. ADVIL PM [Suspect]
     Active Substance: DIPHENHYDRAMINE CITRATE\IBUPROFEN
     Indication: SLEEP DISORDER
     Dosage: UNK
     Dates: end: 2020
  4. MELOXICAM. [Concomitant]
     Active Substance: MELOXICAM
     Dosage: 15 MG, 1X/DAY AT 6 IN THE MORNING
  5. OMEPRAZOLE. [Concomitant]
     Active Substance: OMEPRAZOLE
     Dosage: 20 MG, 1X/DAY
  6. VITAMIN A [Concomitant]
     Active Substance: VITAMIN A
     Dosage: 3000 ?G, 1X/DAY
  7. LISINOPRIL. [Suspect]
     Active Substance: LISINOPRIL
     Indication: HYPERTENSION
     Dosage: 15 MG, 1X/DAY
  8. LISINOPRIL. [Suspect]
     Active Substance: LISINOPRIL
     Dosage: 20 MG, 1X/DAY
  9. CAPLYTA [Suspect]
     Active Substance: LUMATEPERONE
     Indication: SCHIZOPHRENIA
     Dosage: 42 MG, 1X/DAY
     Route: 048
     Dates: start: 20200729, end: 2020
  10. BENADRYL [Concomitant]
     Active Substance: DIPHENHYDRAMINE HYDROCHLORIDE
  11. VITAMIN B COMPLEX [Concomitant]
     Active Substance: CYANOCOBALAMIN\DEXPANTHENOL\NIACINAMIDE\PYRIDOXINE HYDROCHLORIDE\RIBOFLAVIN 5^-PHOSPHATE SODIUM\THIAMINE HYDROCHLORIDE\VITAMIN B COMPLEX
     Dosage: 1 UNK, 1X/DAY EVERY MORNING
  12. CAPLYTA [Suspect]
     Active Substance: LUMATEPERONE
     Indication: BIPOLAR I DISORDER
     Dosage: 42 MG, 2X/DAY (1 IN THE MORNING AND 1 IN THE EVENING)
     Dates: start: 202010
  13. CAPLYTA [Suspect]
     Active Substance: LUMATEPERONE
     Indication: POST-TRAUMATIC STRESS DISORDER
  14. VITAMIN B12 [Concomitant]
     Active Substance: CYANOCOBALAMIN
     Dosage: 500 ?G, 2X/DAY
  15. KLONOPIN [Concomitant]
     Active Substance: CLONAZEPAM
     Dosage: 4 MG, 1X/DAY AT NIGHT
  16. OXCARBAZEPINE. [Concomitant]
     Active Substance: OXCARBAZEPINE
     Dosage: 1800 MG PER DAY (^2 EVERY SIX HOURS^)
  17. SERTRALINE [Concomitant]
     Active Substance: SERTRALINE HYDROCHLORIDE
     Dosage: 25 MG, 1X/DAY
  18. BIOTIN [Concomitant]
     Active Substance: BIOTIN
     Dosage: 500 ?G, 2X/DAY
  19. VITAMIN E [Concomitant]
     Active Substance: .ALPHA.-TOCOPHEROL
     Dosage: 200 IU, 2X/DAY (1 IN THE MORNING AND 1 IN THE EVENING)
  20. KLONOPIN [Concomitant]
     Active Substance: CLONAZEPAM
     Dosage: 2 MG, 2X/DAY
  21. VITAMIN B6 [Concomitant]
     Active Substance: PYRIDOXINE HYDROCHLORIDE
     Dosage: 100 MG, 1X/DAY

REACTIONS (22)
  - Psychotic disorder [Unknown]
  - Hallucination, visual [Recovering/Resolving]
  - Drug interaction [Recovered/Resolved]
  - Drug ineffective [Recovering/Resolving]
  - Hypertension [Unknown]
  - Impaired self-care [Unknown]
  - Suicidal ideation [Unknown]
  - Headache [Unknown]
  - Delusion [Unknown]
  - Emotional disorder [Unknown]
  - Crying [Unknown]
  - Screaming [Recovering/Resolving]
  - Intentional product use issue [Not Recovered/Not Resolved]
  - Anger [Recovering/Resolving]
  - Weight decreased [Not Recovered/Not Resolved]
  - Hallucination, auditory [Recovering/Resolving]
  - Peripheral swelling [Recovered/Resolved]
  - Diarrhoea [Unknown]
  - Sedation [Unknown]
  - Heart rate increased [Recovered/Resolved]
  - Hypoaesthesia oral [Unknown]
  - Violence-related symptom [Unknown]

NARRATIVE: CASE EVENT DATE: 2020
